FAERS Safety Report 21093702 (Version 3)
Quarter: 2022Q4

REPORT INFORMATION
  Report Type: Report from Study
  Country: LB (occurrence: LB)
  Receive Date: 20220718
  Receipt Date: 20221019
  Transmission Date: 20230112
  Serious: Yes (Other)
  Sender: FDA-Public Use
  Company Number: LB-NOVARTISPH-NVSC2022LB137776

PATIENT
  Age: 23 Year
  Sex: Male
  Weight: 55 kg

DRUGS (2)
  1. JADENU [Suspect]
     Active Substance: DEFERASIROX
     Indication: Thalassaemia
     Dosage: 3 DOSAGE FORM
     Route: 048
     Dates: start: 201904, end: 202205
  2. JADENU [Suspect]
     Active Substance: DEFERASIROX
     Dosage: 1 DOSAGE FORM, QD
     Route: 048
     Dates: start: 202210

REACTIONS (3)
  - Splenomegaly [Not Recovered/Not Resolved]
  - Weight decreased [Recovering/Resolving]
  - Product availability issue [Unknown]

NARRATIVE: CASE EVENT DATE: 20220601
